FAERS Safety Report 14772549 (Version 2)
Quarter: 2018Q2

REPORT INFORMATION
  Report Type: Report from Study
  Country: FR (occurrence: FR)
  Receive Date: 20180418
  Receipt Date: 20180522
  Transmission Date: 20180711
  Serious: Yes (Hospitalization, Other)
  Sender: FDA-Public Use
  Company Number: FR-ACCORD-065740

PATIENT
  Age: 45 Year
  Sex: Female
  Weight: 54 kg

DRUGS (13)
  1. FOLIC ACID. [Concomitant]
     Active Substance: FOLIC ACID
     Dosage: ALSO RECEIVED FROM AUG-2017
     Route: 048
     Dates: start: 20161013, end: 201706
  2. KETOPROFEN/KETOPROFEN ARGINATE/KETOPROFEN LYSINE/KETOPROFEN SODIUM [Concomitant]
     Indication: HEADACHE
     Dosage: 150 MG, AS NEEDED
     Route: 048
     Dates: start: 20140407
  3. IZILOX [Concomitant]
     Active Substance: MOXIFLOXACIN HYDROCHLORIDE
     Dosage: UNK
     Dates: start: 20141009, end: 20151024
  4. AERIUS [Concomitant]
     Active Substance: DESLORATADINE
     Dosage: 1 DF, DAILY
     Dates: start: 20140407, end: 201404
  5. GLYCEROL\PARAFFIN [Concomitant]
     Active Substance: GLYCERIN\PARAFFIN
     Dosage: UNK, 1X/DAY
     Dates: start: 20131202
  6. METHOTREXATE. [Suspect]
     Active Substance: METHOTREXATE
     Indication: PSORIASIS
     Dosage: ALSO RECEIVE (CUMULATIVE DOSE-900 MG) 15 MG/1 WEEK FROM 27-OCT-2011 TO 15-DEC-2012 (416 DAY) ORALLY
     Route: 058
     Dates: start: 20161013
  7. ENBREL [Suspect]
     Active Substance: ETANERCEPT
     Indication: PSORIASIS
     Dosage: RECEIVED FROM 07-MAR-2014 TO 09-OCT-2014 (217 DAYS),100 MG FROM 02-DEC-2013 TO 06-MAR-2014 (95 DAYS)
     Route: 058
     Dates: start: 20150507, end: 20150709
  8. SYMBICORT [Concomitant]
     Active Substance: BUDESONIDE\FORMOTEROL FUMARATE DIHYDRATE
     Dosage: 200 MG, 2X/DAY
     Route: 048
  9. VENTOLINE [Concomitant]
     Active Substance: ALBUTEROL
     Dosage: 2 DF, DAILY
     Dates: start: 20140407, end: 201404
  10. NASONEX [Concomitant]
     Active Substance: MOMETASONE FUROATE
     Dates: start: 20140407, end: 20140607
  11. DAIVOBET [Concomitant]
     Active Substance: BETAMETHASONE DIPROPIONATE\CALCIPOTRIENE
     Dosage: UNK, 1X/DAY
     Dates: start: 20131202
  12. XYZALL [Concomitant]
     Active Substance: LEVOCETIRIZINE DIHYDROCHLORIDE
     Dosage: UNK, 2X/DAY
     Route: 048
  13. DONORMYL [Concomitant]
     Dosage: UNK
     Route: 048

REACTIONS (2)
  - Intraductal proliferative breast lesion [Recovered/Resolved with Sequelae]
  - Psoriasis [Unknown]

NARRATIVE: CASE EVENT DATE: 20150709
